FAERS Safety Report 10385585 (Version 1)
Quarter: 2014Q3

REPORT INFORMATION
  Report Type: Spontaneous
  Country: US (occurrence: US)
  Receive Date: 20140814
  Receipt Date: 20140814
  Transmission Date: 20150326
  Serious: Yes (Other)
  Sender: FDA-Public Use
  Company Number: US-ACTAVIS-2014-17413

PATIENT
  Sex: Female

DRUGS (2)
  1. CARBIDOPA/LEVODOPA (AELLC) [Suspect]
     Active Substance: CARBIDOPA\LEVODOPA
     Indication: PARKINSON^S DISEASE
     Dosage: 2 DF, QID
     Route: 048
     Dates: start: 2014
  2. LEVOTHYROXINE [Concomitant]
     Active Substance: LEVOTHYROXINE
     Indication: HYPOTHYROIDISM
     Dosage: 1 DF, DAILY
     Route: 048

REACTIONS (8)
  - Loss of consciousness [Unknown]
  - Asthenia [Not Recovered/Not Resolved]
  - Insomnia [Recovering/Resolving]
  - Rash generalised [Recovering/Resolving]
  - Chest pain [Not Recovered/Not Resolved]
  - Pain in extremity [Recovering/Resolving]
  - Vomiting [Not Recovered/Not Resolved]
  - Nausea [Not Recovered/Not Resolved]

NARRATIVE: CASE EVENT DATE: 2014
